FAERS Safety Report 6473053-7 (Version None)
Quarter: 2009Q4

REPORT INFORMATION
  Report Type: 
  Country: None (occurrence: None)
  Receive Date: 20091130
  Receipt Date: 20091118
  Transmission Date: 20100525
  Serious: Yes (Other)
  Sender: FDA-Public Use
  Company Number: 09US005185

PATIENT
  Age: 23 Month
  Sex: Female
  Weight: 15.9 kg

DRUGS (1)
  1. NITETIME FREE CHRY 6HR LIQ 041 (PARACETAMOL 33.333 MG/ML, DEXTROMETHOR [Suspect]
     Indication: ACCIDENTAL DRUG INTAKE BY CHILD
     Dosage: 3 OUNCES, SINGLE, ORAL
     Route: 048
     Dates: start: 20091118, end: 20091118

REACTIONS (4)
  - ACCIDENTAL DRUG INTAKE BY CHILD [None]
  - ACCIDENTAL EXPOSURE [None]
  - ACCIDENTAL OVERDOSE [None]
  - VOMITING [None]
